FAERS Safety Report 7794328-5 (Version None)
Quarter: 2011Q4

REPORT INFORMATION
  Report Type: 
  Country: None (occurrence: None)
  Receive Date: 20111004
  Receipt Date: 20110929
  Transmission Date: 20120403
  Serious: Yes (Hospitalization)
  Sender: FDA-Public Use
  Company Number: SE-PFIZER INC-2011233340

PATIENT
  Age: 64 Year
  Sex: Male

DRUGS (5)
  1. FELODIPINE [Concomitant]
     Dosage: UNK
  2. BYETTA [Suspect]
     Dosage: 20 MG DAILY
     Route: 058
     Dates: start: 20081031
  3. METFORMIN [Concomitant]
     Dosage: UNK
  4. TENORMIN [Concomitant]
     Dosage: UNK
  5. ARTHROTEC [Suspect]
     Dosage: 50 MG DAILY
     Route: 048
     Dates: start: 20080515, end: 20110809

REACTIONS (1)
  - CARDIAC FAILURE [None]
